FAERS Safety Report 5082861-9 (Version None)
Quarter: 2006Q3

REPORT INFORMATION
  Report Type: 
  Country: None (occurrence: None)
  Receive Date: 20060817
  Receipt Date: 20060809
  Transmission Date: 20061208
  Serious: Yes (Death)
  Sender: FDA-Public Use
  Company Number: US-ABBOTT-06P-163-0339953-00

PATIENT
  Sex: Male

DRUGS (4)
  1. VICODIN [Suspect]
     Indication: BACK DISORDER
     Route: 048
  2. BUPROPION HCL [Interacting]
     Indication: DEPRESSION
     Route: 048
     Dates: start: 20060101
  3. FLUOXETINE HYDROCHLORIDE [Interacting]
     Indication: DEPRESSION
     Route: 048
     Dates: start: 20051201, end: 20060301
  4. FLUOXETINE HYDROCHLORIDE [Interacting]
     Route: 048
     Dates: start: 20060301

REACTIONS (3)
  - COMPLETED SUICIDE [None]
  - DRUG INTERACTION [None]
  - INTENTIONAL OVERDOSE [None]
